FAERS Safety Report 9870378 (Version 1)
Quarter: 2014Q1

REPORT INFORMATION
  Report Type: Spontaneous
  Country: US (occurrence: None)
  Receive Date: 20140203
  Receipt Date: 20140203
  Transmission Date: 20141002
  Serious: Yes (Other)
  Sender: FDA-Public Use
  Company Number: 001658098A

PATIENT
  Age: 57 Year
  Sex: Female

DRUGS (3)
  1. MEANINGFUL BEAUTY ANTIOXIDANT DAY CREME SPF 20 [Suspect]
     Route: 023
     Dates: start: 20131202, end: 20131229
  2. MEANINGFUL BEAUTY CINDY CRAWFORD SKIN BRIGHTENING DECOLLETE AND NECK TREATMENT SPF 15 [Suspect]
     Route: 023
     Dates: start: 20121202, end: 20121229
  3. ASPIRIN AND HERBALS [Concomitant]

REACTIONS (2)
  - Pruritus [None]
  - Urticaria [None]
